FAERS Safety Report 24041246 (Version 2)
Quarter: 2024Q3

REPORT INFORMATION
  Report Type: Report from Study
  Country: CN (occurrence: CN)
  Receive Date: 20240702
  Receipt Date: 20240708
  Transmission Date: 20241016
  Serious: Yes (Other)
  Sender: GILEAD
  Company Number: CN-GILEAD-2024-0678846

PATIENT

DRUGS (1)
  1. SOFOSBUVIR\VELPATASVIR\VOXILAPREVIR [Suspect]
     Active Substance: SOFOSBUVIR\VELPATASVIR\VOXILAPREVIR
     Indication: Hepatitis C
     Dosage: SOF 400 MG/VEL 100 MG/VOXILAPREVIR (VOX) 100 MG, TREATMENT FOR 12 WEEKS
     Route: 048

REACTIONS (3)
  - Hepatitis C [Recovered/Resolved]
  - Transaminases increased [Recovered/Resolved]
  - Drug ineffective [Unknown]
